FAERS Safety Report 24575485 (Version 1)
Quarter: 2024Q4

REPORT INFORMATION
  Report Type: Spontaneous
  Country: US (occurrence: US)
  Receive Date: 20241104
  Receipt Date: 20241104
  Transmission Date: 20250114
  Serious: No
  Sender: ABBVIE
  Company Number: US-ABBVIE-5982032

PATIENT

DRUGS (4)
  1. HUMIRA [Suspect]
     Active Substance: ADALIMUMAB
     Indication: Product used for unknown indication
     Dosage: OVER 10 YEARS
     Route: 058
  2. REFRESH OPTIVE MEGA-3 [Suspect]
     Active Substance: CARBOXYMETHYLCELLULOSE SODIUM\GLYCERIN\POLYSORBATE 80
     Indication: Product used for unknown indication
     Route: 047
     Dates: start: 20241025
  3. SYSTANE COMPLETE [Suspect]
     Active Substance: PROPYLENE GLYCOL
     Indication: Product used for unknown indication
     Dosage: PRESERVATIVE FREE
     Route: 065
  4. REFRESH PLUS [Suspect]
     Active Substance: CARBOXYMETHYLCELLULOSE SODIUM
     Indication: Product used for unknown indication
     Dosage: 12X A DAY ?START DATE: OVER 4 MONTHS
     Route: 047
     Dates: start: 2024, end: 2024

REACTIONS (4)
  - Ocular hyperaemia [Unknown]
  - Eye irritation [Unknown]
  - Herpes ophthalmic [Unknown]
  - Eye irritation [Recovered/Resolved]

NARRATIVE: CASE EVENT DATE: 20240601
